FAERS Safety Report 18946810 (Version 1)
Quarter: 2021Q1

REPORT INFORMATION
  Report Type: Spontaneous
  Country: US (occurrence: US)
  Receive Date: 20210226
  Receipt Date: 20210226
  Transmission Date: 20210420
  Serious: No
  Sender: FDA-Public Use
  Company Number: US-EVOLUS, INC.-2020EV000654

PATIENT
  Age: 58 Year
  Sex: Female

DRUGS (1)
  1. JEUVEAU [Suspect]
     Active Substance: PRABOTULINUMTOXINA-XVFS
     Indication: PRODUCT USED FOR UNKNOWN INDICATION
     Dates: start: 20201209

REACTIONS (7)
  - Flushing [Unknown]
  - Dry eye [Unknown]
  - Feeling hot [Unknown]
  - Headache [Unknown]
  - Eye irritation [Unknown]
  - Erythema [Unknown]
  - Nasal congestion [Unknown]
